FAERS Safety Report 7368825-0 (Version None)
Quarter: 2011Q1

REPORT INFORMATION
  Report Type: 
  Country: None (occurrence: None)
  Receive Date: 20110323
  Receipt Date: 20100908
  Transmission Date: 20110831
  Serious: Yes (Hospitalization)
  Sender: FDA-Public Use
  Company Number: US-BAYER-201020938NA

PATIENT
  Sex: Female
  Weight: 68 kg

DRUGS (8)
  1. YAZ [Suspect]
     Indication: CONTRACEPTION
     Dosage: UNK UNK, UNK
     Route: 048
     Dates: start: 20050601, end: 20070401
  2. CYTOMEL [Concomitant]
  3. SINGULAIR [Concomitant]
  4. LEVAQUIN [Concomitant]
  5. YASMIN [Suspect]
     Indication: CONTRACEPTION
     Dosage: UNK
     Dates: start: 20050601, end: 20070401
  6. SYNTHROID [Concomitant]
     Dosage: UNK
     Dates: start: 20050101
  7. ASCORBIC ACID [Concomitant]
     Dosage: UNK
     Dates: start: 20000101
  8. ALBUTEROL [Concomitant]
     Dosage: UNK
     Route: 045
     Dates: start: 20000101

REACTIONS (3)
  - PAIN [None]
  - CHOLECYSTITIS [None]
  - GALLBLADDER NON-FUNCTIONING [None]
